FAERS Safety Report 19147147 (Version 3)
Quarter: 2021Q2

REPORT INFORMATION
  Report Type: Report from Study
  Country: BR (occurrence: BR)
  Receive Date: 20210416
  Receipt Date: 20210527
  Transmission Date: 20210717
  Serious: Yes (Hospitalization, Other)
  Sender: FDA-Public Use
  Company Number: BR-BRISTOL-MYERS SQUIBB COMPANY-BMS-2018-003811

PATIENT
  Age: 27 Year
  Sex: Male

DRUGS (3)
  1. ABATACEPT [Suspect]
     Active Substance: ABATACEPT
     Indication: RHEUMATOID ARTHRITIS
     Dosage: 250 MILLIGRAM, QMO
     Route: 042
     Dates: start: 201710
  2. CLINDAMYCIN. [Suspect]
     Active Substance: CLINDAMYCIN
     Indication: FURUNCLE
     Dosage: UNK
     Route: 065
     Dates: start: 20210325
  3. DIPYRONE [Concomitant]
     Active Substance: DIPYRONE
     Indication: HEADACHE
     Dosage: UNK
     Route: 065

REACTIONS (31)
  - Furuncle [Unknown]
  - Hypotension [Recovering/Resolving]
  - Somnolence [Recovering/Resolving]
  - Nasal obstruction [Unknown]
  - Bacterial blepharitis [Unknown]
  - Dysphonia [Recovering/Resolving]
  - Optic atrophy [Recovered/Resolved]
  - Epidermolysis [Recovered/Resolved]
  - Pyrexia [Recovering/Resolving]
  - Renal disorder [Unknown]
  - Seizure [Recovering/Resolving]
  - Pallor [Recovered/Resolved]
  - Headache [Recovered/Resolved]
  - Syncope [Recovered/Resolved]
  - Eye inflammation [Unknown]
  - Eye infection [Recovering/Resolving]
  - Immune system disorder [Recovering/Resolving]
  - Abdominal pain [Recovered/Resolved]
  - Infusion related reaction [Recovering/Resolving]
  - Underweight [Unknown]
  - Asthenia [Unknown]
  - Liver disorder [Unknown]
  - Conjunctivitis [Unknown]
  - Dyspnoea [Recovering/Resolving]
  - Prescribed underdose [Unknown]
  - Skin papilloma [Unknown]
  - Vomiting [Recovered/Resolved]
  - Eating disorder [Recovering/Resolving]
  - Muscle atrophy [Unknown]
  - Hordeolum [Unknown]
  - Otorrhoea [Unknown]

NARRATIVE: CASE EVENT DATE: 2019
